FAERS Safety Report 14160088 (Version 4)
Quarter: 2017Q4

REPORT INFORMATION
  Report Type: Spontaneous
  Country: RO (occurrence: RO)
  Receive Date: 20171103
  Receipt Date: 20171205
  Transmission Date: 20180321
  Serious: Yes (Death, Life-Threatening, Hospitalization, Other)
  Sender: FDA-Public Use
  Company Number: RO-GILEAD-2017-0301523

PATIENT
  Age: 64 Year
  Sex: Male
  Weight: 90 kg

DRUGS (9)
  1. SALINE                             /00075401/ [Concomitant]
     Active Substance: SODIUM CHLORIDE
     Dosage: 1000 ML, QD
  2. HARVONI [Suspect]
     Active Substance: LEDIPASVIR\SOFOSBUVIR
     Indication: HEPATITIS C
     Dosage: 1 DF, QD
     Route: 048
     Dates: end: 20171020
  3. CARVEDILOL. [Concomitant]
     Active Substance: CARVEDILOL
     Indication: VARICES OESOPHAGEAL
     Dosage: 12.5 MG, QD
     Route: 048
  4. LINEZOLID. [Concomitant]
     Active Substance: LINEZOLID
  5. HARVONI [Suspect]
     Active Substance: LEDIPASVIR\SOFOSBUVIR
     Indication: HEPATIC CIRRHOSIS
  6. INSULIN                            /00646001/ [Concomitant]
     Active Substance: INSULIN NOS
     Indication: DIABETES MELLITUS
     Route: 042
  7. RIFAXIMIN. [Concomitant]
     Active Substance: RIFAXIMIN
     Indication: HEPATIC ENCEPHALOPATHY PROPHYLAXIS
     Dosage: 1.2 G, QD
     Route: 048
     Dates: start: 20171023
  8. MEROPENEM. [Concomitant]
     Active Substance: MEROPENEM
  9. GLUCOSE                            /00203503/ [Concomitant]
     Dosage: 500 ML, QD

REACTIONS (17)
  - Diabetic nephropathy [Unknown]
  - Acute respiratory failure [Unknown]
  - Cardio-respiratory arrest [Fatal]
  - Fistula [Not Recovered/Not Resolved]
  - Renal failure [Not Recovered/Not Resolved]
  - Chronic kidney disease [Unknown]
  - Hepatic encephalopathy [Unknown]
  - Hypertension [Not Recovered/Not Resolved]
  - Acute kidney injury [Unknown]
  - Hypoalbuminaemia [Unknown]
  - Ascites [Recovered/Resolved]
  - Umbilical hernia [Not Recovered/Not Resolved]
  - Disease progression [Unknown]
  - Anaemia [Not Recovered/Not Resolved]
  - Sepsis [Unknown]
  - Pleurisy [Unknown]
  - Hypoglycaemia [Not Recovered/Not Resolved]

NARRATIVE: CASE EVENT DATE: 20171016
